FAERS Safety Report 7916467-8 (Version None)
Quarter: 2011Q4

REPORT INFORMATION
  Report Type: 
  Country: None (occurrence: None)
  Receive Date: 20111114
  Receipt Date: 20110908
  Transmission Date: 20120403
  Serious: Yes (Other)
  Sender: FDA-Public Use
  Company Number: AUR-APL-2011-05787

PATIENT
  Age: 45 Year
  Sex: Female
  Weight: 68.03 kg

DRUGS (7)
  1. HYDROCODONE BITARTRATE [Concomitant]
  2. XANAX [Concomitant]
  3. SIMVASTATIN [Suspect]
     Indication: BLOOD CHOLESTEROL ABNORMAL
     Dosage: 40 MG (40 MG, 1 IN 1 D)
  4. CHANTIX [Suspect]
     Indication: SMOKING CESSATION THERAPY
     Dosage: 0.5 MG (0.5 MG, 1 IN 1 D), ORAL
     Route: 048
     Dates: start: 20110905
  5. SPIRIVA [Concomitant]
  6. RANITIDINE HYDROCHLORIDE [Concomitant]
  7. LISINOPRIL [Concomitant]

REACTIONS (2)
  - IRRITABLE BOWEL SYNDROME [None]
  - OROPHARYNGEAL BLISTERING [None]
